FAERS Safety Report 23396596 (Version 4)
Quarter: 2024Q3

REPORT INFORMATION
  Report Type: Report from Study
  Country: US (occurrence: US)
  Receive Date: 20240112
  Receipt Date: 20240827
  Transmission Date: 20241017
  Serious: Yes (Hospitalization, Other)
  Sender: NOVARTIS
  Company Number: US-002147023-NVSC2024US006460

PATIENT
  Sex: Female

DRUGS (1)
  1. KESIMPTA [Suspect]
     Active Substance: OFATUMUMAB
     Indication: Multiple sclerosis
     Dosage: 20 MG, QMO
     Route: 058
     Dates: start: 20231020

REACTIONS (5)
  - Depression [Recovering/Resolving]
  - Bipolar disorder [Unknown]
  - Nasopharyngitis [Unknown]
  - Nasal congestion [Unknown]
  - Hypersensitivity [Unknown]
